FAERS Safety Report 8721740 (Version 5)
Quarter: 2013Q1

REPORT INFORMATION
  Report Type: Spontaneous
  Country: US (occurrence: US)
  Receive Date: 20120814
  Receipt Date: 20130307
  Transmission Date: 20140127
  Serious: No
  Sender: FDA-Public Use
  Company Number: US-PFIZER INC-2012196005

PATIENT
  Age: 60 Year
  Sex: Male
  Weight: 105 kg

DRUGS (12)
  1. XALKORI [Suspect]
     Indication: LUNG CARCINOMA CELL TYPE UNSPECIFIED STAGE III
     Dosage: 250 MG, 2X/DAY
     Route: 048
     Dates: start: 2012
  2. ANDROGEL [Suspect]
     Indication: BLOOD TESTOSTERONE DECREASED
     Dosage: UNK
  3. LANTUS SOLOSTAR [Concomitant]
     Indication: DIABETES MELLITUS
     Dosage: DAILY
  4. HUMALOG [Concomitant]
     Indication: DIABETES MELLITUS
     Dosage: UNK
  5. CO ENZYME Q10 [Concomitant]
  6. INSULIN [Concomitant]
  7. TAMSULOSIN [Concomitant]
  8. VITAMIN B12 [Concomitant]
  9. HIBISCUS TEA [Concomitant]
  10. FOLIC ACID [Concomitant]
  11. CINNAMON [Concomitant]
  12. OMEGA 3 [Concomitant]

REACTIONS (5)
  - Diarrhoea [Unknown]
  - Weight increased [Unknown]
  - Headache [Unknown]
  - Fatigue [Unknown]
  - Hypersomnia [Unknown]
